FAERS Safety Report 5859238-9 (Version None)
Quarter: 2008Q3

REPORT INFORMATION
  Report Type: 
  Country: None (occurrence: None)
  Receive Date: 20080826
  Receipt Date: 20080826
  Transmission Date: 20090109
  Serious: Yes (Hospitalization)
  Sender: FDA-Public Use
  Company Number: None

PATIENT
  Age: 51 Year
  Sex: Female
  Weight: 78.0187 kg

DRUGS (1)
  1. AVANDIA [Suspect]
     Indication: DIABETES MELLITUS
     Dosage: 1 PILL  1 TIME A DAY  PO
     Route: 048
     Dates: start: 20000310, end: 20040101

REACTIONS (6)
  - BLOOD CHOLESTEROL INCREASED [None]
  - CHEST PAIN [None]
  - MUSCULOSKELETAL PAIN [None]
  - SINUSITIS [None]
  - SWELLING [None]
  - WEIGHT INCREASED [None]
